FAERS Safety Report 5215646-0 (Version None)
Quarter: 2007Q1

REPORT INFORMATION
  Report Type: 
  Country: None (occurrence: None)
  Receive Date: 20070123
  Receipt Date: 20070115
  Transmission Date: 20070707
  Serious: Yes (Hospitalization)
  Sender: FDA-Public Use
  Company Number: DE-ROCHE-464067

PATIENT
  Age: 63 Year
  Sex: Male

DRUGS (4)
  1. DACLIZUMAB [Suspect]
     Route: 065
     Dates: start: 20060826, end: 20060826
  2. DACLIZUMAB [Suspect]
     Route: 065
     Dates: start: 20060902, end: 20060902
  3. TACROLIMUS [Suspect]
     Route: 048
     Dates: start: 20060827
  4. TACROLIMUS [Suspect]
     Route: 048
     Dates: end: 20060908

REACTIONS (1)
  - DYSARTHRIA [None]
